FAERS Safety Report 7353440-5 (Version None)
Quarter: 2011Q1

REPORT INFORMATION
  Report Type: 
  Country: None (occurrence: None)
  Receive Date: 20110315
  Receipt Date: 20110310
  Transmission Date: 20110831
  Serious: Yes (Other)
  Sender: FDA-Public Use
  Company Number: US-JNJFOC-2010021294

PATIENT
  Sex: Female
  Weight: 61.7 kg

DRUGS (2)
  1. VISINE-A [Suspect]
     Indication: EYE PRURITUS
     Dosage: DAILY DOSE TEXT: 1 DROP IN EACH EYE 2-3 DROPS A WEEK
     Route: 047
  2. VISINE-A [Suspect]
     Indication: OCULAR HYPERAEMIA
     Dosage: DAILY DOSE TEXT: 1 DROP IN EACH EYE 2-3 DROPS A WEEK
     Route: 047

REACTIONS (3)
  - VISUAL IMPAIRMENT [None]
  - LENS DISORDER [None]
  - DRY EYE [None]
